FAERS Safety Report 13225449 (Version 1)
Quarter: 2017Q1

REPORT INFORMATION
  Report Type: Spontaneous
  Country: US (occurrence: US)
  Receive Date: 20170210
  Receipt Date: 20170210
  Transmission Date: 20170428
  Serious: Yes (Other)
  Sender: FDA-Public Use
  Company Number: None

PATIENT
  Age: 67 Year
  Sex: Male

DRUGS (12)
  1. ATENOLOL. [Concomitant]
     Active Substance: ATENOLOL
  2. PREDNISONE. [Concomitant]
     Active Substance: PREDNISONE
  3. LANTUS [Concomitant]
     Active Substance: INSULIN GLARGINE
  4. APIDRA [Concomitant]
     Active Substance: INSULIN GLULISINE
  5. CHOLESTYRAMINE. [Concomitant]
     Active Substance: CHOLESTYRAMINE
  6. JANUVIA [Concomitant]
     Active Substance: SITAGLIPTIN PHOSPHATE
  7. METHOTREXATE. [Concomitant]
     Active Substance: METHOTREXATE
  8. ENBREL [Suspect]
     Active Substance: ETANERCEPT
     Indication: RHEUMATOID ARTHRITIS
     Dosage: 1 SYRINGE BIW SUBQ
     Route: 058
     Dates: start: 20130606, end: 20170127
  9. ALLOPURINOL. [Concomitant]
     Active Substance: ALLOPURINOL
  10. CRESTOR [Concomitant]
     Active Substance: ROSUVASTATIN CALCIUM
  11. PROTONIX [Concomitant]
     Active Substance: PANTOPRAZOLE SODIUM
  12. CELEBREX [Concomitant]
     Active Substance: CELECOXIB

REACTIONS (1)
  - Renal mass [None]

NARRATIVE: CASE EVENT DATE: 201701
